FAERS Safety Report 16796209 (Version 2)
Quarter: 2019Q3

REPORT INFORMATION
  Report Type: Report from Study
  Country: CZ (occurrence: CZ)
  Receive Date: 20190911
  Receipt Date: 20190927
  Transmission Date: 20191005
  Serious: Yes (Death, Hospitalization, Other)
  Sender: FDA-Public Use
  Company Number: CZ-INCYTE CORPORATION-2016IN002356

PATIENT

DRUGS (3)
  1. JAKAVI [Suspect]
     Active Substance: RUXOLITINIB
     Indication: MYELOPROLIFERATIVE NEOPLASM
     Dosage: 20 MG, BID
     Route: 065
     Dates: start: 20150115, end: 20150409
  2. JAKAVI [Suspect]
     Active Substance: RUXOLITINIB
     Indication: POLYCYTHAEMIA VERA
     Dosage: 20 MG, BID
     Route: 065
     Dates: end: 20151002
  3. JAKAVI [Suspect]
     Active Substance: RUXOLITINIB
     Indication: MYELOFIBROSIS

REACTIONS (12)
  - Infection [Fatal]
  - Decreased appetite [Unknown]
  - Splenomegaly [Unknown]
  - Haemorrhage [Recovering/Resolving]
  - Hyperhidrosis [Unknown]
  - Multiple organ dysfunction syndrome [Fatal]
  - Weight decreased [Unknown]
  - Myeloproliferative neoplasm [Unknown]
  - Urosepsis [Fatal]
  - Injury [Recovering/Resolving]
  - Fatigue [Unknown]
  - General physical health deterioration [Fatal]

NARRATIVE: CASE EVENT DATE: 20150502
